FAERS Safety Report 5021485-6 (Version None)
Quarter: 2006Q2

REPORT INFORMATION
  Report Type: 
  Country: None (occurrence: None)
  Receive Date: 20060601
  Receipt Date: 20060309
  Transmission Date: 20061013
  Serious: No
  Sender: FDA-Public Use
  Company Number: 2006PV009936

PATIENT
  Age: 37 Year
  Sex: Female
  Weight: 78.9259 kg

DRUGS (5)
  1. BYETTA [Suspect]
     Indication: DIABETES MELLITUS NON-INSULIN-DEPENDENT
     Dosage: SEE IMAGE
     Route: 058
  2. BYETTA [Suspect]
     Indication: DIABETES MELLITUS NON-INSULIN-DEPENDENT
     Dosage: SEE IMAGE
     Route: 058
     Dates: start: 20050101
  3. GLUCOPHAGE [Concomitant]
  4. GLUCOTROL [Concomitant]
  5. AMARYL [Concomitant]

REACTIONS (1)
  - INJECTION SITE PAIN [None]
